FAERS Safety Report 6366452-5 (Version None)
Quarter: 2009Q3

REPORT INFORMATION
  Report Type: 
  Country: None (occurrence: None)
  Receive Date: 20090921
  Receipt Date: 20090909
  Transmission Date: 20100115
  Serious: Yes (Death)
  Sender: FDA-Public Use
  Company Number: JP-ROCHE-656629

PATIENT
  Age: 40 Year
  Sex: Male

DRUGS (1)
  1. TAMIFLU [Suspect]
     Indication: INFLUENZA
     Dosage: FORM: ORAL FORMULATION (NOS).
     Route: 048

REACTIONS (1)
  - MYOCARDIAL ISCHAEMIA [None]
